FAERS Safety Report 10004118 (Version 2)
Quarter: 2014Q1

REPORT INFORMATION
  Report Type: Spontaneous
  Country: US (occurrence: US)
  Receive Date: 20140312
  Receipt Date: 20140312
  Transmission Date: 20141002
  Serious: Yes (Hospitalization, Other)
  Sender: FDA-Public Use
  Company Number: US-INCYTE CORPORATION-2013IN002685

PATIENT
  Age: 63 Year
  Sex: Female
  Weight: 71.1 kg

DRUGS (7)
  1. FOLIC ACID [Concomitant]
     Dosage: 1 MG, QD
     Route: 048
  2. LEVOTHYROXINE [Concomitant]
     Dosage: 112 MCG, QD
     Route: 048
  3. OMEPRAZOLE [Concomitant]
     Dosage: 20 MG, QD
     Route: 048
  4. SUMATRIPTAN SUCCINATE [Concomitant]
     Dosage: 50 MG, PRN
     Route: 048
  5. CETIRIZINE [Concomitant]
     Dosage: 10 MG, QD
     Route: 048
  6. JAKAFI [Suspect]
     Indication: MYELOPROLIFERATIVE DISORDER
     Dosage: 10 MG, BID
     Route: 048
     Dates: start: 20120622
  7. JAKAFI [Suspect]
     Dosage: 10 MG, BID
     Route: 048
     Dates: start: 20120616, end: 20120730

REACTIONS (1)
  - Haemoglobin decreased [Recovered/Resolved]
